FAERS Safety Report 21000096 (Version 1)
Quarter: 2022Q2

REPORT INFORMATION
  Report Type: Spontaneous
  Country: US (occurrence: US)
  Receive Date: 20220623
  Receipt Date: 20220623
  Transmission Date: 20220721
  Serious: No
  Sender: FDA-Public Use
  Company Number: US-TAKEDA-2022TUS041126

PATIENT
  Sex: Male
  Weight: 104 kg

DRUGS (5)
  1. VYVANSE [Suspect]
     Active Substance: LISDEXAMFETAMINE DIMESYLATE
     Indication: Attention deficit hyperactivity disorder
     Dosage: 40 MILLIGRAM, QD
     Route: 065
  2. ADDERALL XR [Suspect]
     Active Substance: AMPHETAMINE ASPARTATE\AMPHETAMINE SULFATE\DEXTROAMPHETAMINE SACCHARATE\DEXTROAMPHETAMINE SULFATE
     Indication: Attention deficit hyperactivity disorder
     Dosage: UNK
     Route: 065
  3. MIRTAZAPINE [Concomitant]
     Active Substance: MIRTAZAPINE
  4. GABAPENTIN [Concomitant]
     Active Substance: GABAPENTIN
     Dosage: 300 MILLIGRAM, TID
     Route: 065
  5. METHADONE [Concomitant]
     Active Substance: METHADONE HYDROCHLORIDE
     Route: 065

REACTIONS (4)
  - Drug ineffective [Unknown]
  - Amphetamines negative [Unknown]
  - Therapy interrupted [Recovered/Resolved]
  - Insurance issue [Unknown]
